FAERS Safety Report 6638404-9 (Version None)
Quarter: 2010Q1

REPORT INFORMATION
  Report Type: 
  Country: None (occurrence: None)
  Receive Date: 20100317
  Receipt Date: 20100308
  Transmission Date: 20100710
  Serious: Yes (Other)
  Sender: FDA-Public Use
  Company Number: B0640340A

PATIENT
  Sex: Female

DRUGS (5)
  1. ONDANSETRON [Suspect]
     Indication: NAUSEA
     Route: 042
  2. FLUIDS [Concomitant]
     Route: 042
  3. PANTOPRAZOLE [Concomitant]
     Route: 065
  4. MIDAZOLAM HCL [Concomitant]
     Route: 042
  5. FENTANYL [Concomitant]
     Route: 042

REACTIONS (2)
  - ARRHYTHMIA [None]
  - ATRIOVENTRICULAR BLOCK SECOND DEGREE [None]
